FAERS Safety Report 5086781-5 (Version None)
Quarter: 2006Q3

REPORT INFORMATION
  Report Type: 
  Country: None (occurrence: None)
  Receive Date: 20060818
  Receipt Date: 20060803
  Transmission Date: 20061208
  Serious: Yes (Other)
  Sender: FDA-Public Use
  Company Number: 2006098621

PATIENT
  Age: 64 Year
  Sex: Female
  Weight: 117.9352 kg

DRUGS (3)
  1. LIPITOR [Suspect]
     Indication: BLOOD CHOLESTEROL INCREASED
     Dosage: 40 MG (40 MG, 1 IN 1 D)
     Dates: start: 19960101, end: 20060601
  2. LOTREL [Concomitant]
  3. MULTIVITAMIN [Concomitant]

REACTIONS (3)
  - MUSCLE SPASMS [None]
  - MYALGIA [None]
  - NEUROPATHY [None]
